FAERS Safety Report 10055523 (Version 2)
Quarter: 2014Q2

REPORT INFORMATION
  Report Type: Spontaneous
  Country: DE (occurrence: DE)
  Receive Date: 20140403
  Receipt Date: 20140409
  Transmission Date: 20141212
  Serious: No
  Sender: FDA-Public Use
  Company Number: DE-BRISTOL-MYERS SQUIBB COMPANY-20573671

PATIENT
  Age: 57 Year
  Sex: Male
  Weight: 138 kg

DRUGS (6)
  1. FORXIGA [Suspect]
     Indication: TYPE 2 DIABETES MELLITUS
     Dosage: 10MG-02TO06JAN^14; 5MG-04TO13FEB^14.?10MG-14TO18FEB^14
     Route: 048
     Dates: start: 20140102, end: 20140218
  2. SIMVASTATIN [Concomitant]
     Indication: HYPERLIPIDAEMIA
     Route: 048
     Dates: start: 201212
  3. NOVORAPID [Concomitant]
     Indication: TYPE 2 DIABETES MELLITUS
     Route: 058
     Dates: start: 2001
  4. ACTRAPID [Concomitant]
     Indication: TYPE 2 DIABETES MELLITUS
     Route: 058
     Dates: start: 2011
  5. LOSARTAN [Concomitant]
     Indication: HYPERTENSION
     Route: 048
     Dates: start: 2011
  6. BISOPROLOL [Concomitant]
     Indication: HYPERTENSION
     Route: 048
     Dates: start: 2009

REACTIONS (2)
  - Polyuria [Recovered/Resolved]
  - Visual impairment [Recovered/Resolved]
